FAERS Safety Report 8444974-0 (Version None)
Quarter: 2012Q2

REPORT INFORMATION
  Report Type: 
  Country: None (occurrence: None)
  Receive Date: 20120618
  Receipt Date: 20120606
  Transmission Date: 20120825
  Serious: Yes (Other)
  Sender: FDA-Public Use
  Company Number: US-ELI_LILLY_AND_COMPANY-US201206002521

PATIENT
  Sex: Female

DRUGS (1)
  1. FORTEO [Suspect]
     Dosage: 20 UNK, UNK
     Dates: start: 20111001

REACTIONS (4)
  - TENDON INJURY [None]
  - EAR INFECTION [None]
  - BONE DENSITY DECREASED [None]
  - TENDON DISORDER [None]
